FAERS Safety Report 8781548 (Version 1)
Quarter: 2012Q4

REPORT INFORMATION
  Report Type: 
  Country: US (occurrence: US)
  Receive Date: 20120913
  Receipt Date: 20120913
  Transmission Date: 20130627
  Serious: Yes (Other)
  Sender: FDA-Public Use
  Company Number: US-PFIZER INC-2012224396

PATIENT
  Age: 71 Year
  Sex: Female
  Weight: 67.57 kg

DRUGS (7)
  1. CHANTIX [Suspect]
     Indication: SMOKING CESSATION THERAPY
     Dosage: 0.5 mg, 1x/day
     Route: 048
     Dates: start: 201205, end: 20120709
  2. NEXIUM [Concomitant]
     Dosage: UNK
  3. ASPIRIN [Concomitant]
     Dosage: UNK, 1x/day
  4. SIMVASTATIN [Concomitant]
     Indication: BLOOD CHOLESTEROL INCREASED
     Dosage: UNK
  5. TRAMADOL [Concomitant]
     Indication: PAIN
     Dosage: UNK
  6. TRAZODONE [Concomitant]
     Indication: SLEEP DISORDER
     Dosage: UNK, as needed
  7. LORAZEPAM [Concomitant]
     Indication: NERVOUSNESS
     Dosage: UNK, as needed

REACTIONS (1)
  - Hypertension [Unknown]
